FAERS Safety Report 21443140 (Version 2)
Quarter: 2022Q4

REPORT INFORMATION
  Report Type: Spontaneous
  Country: FR (occurrence: FR)
  Receive Date: 20221012
  Receipt Date: 20221130
  Transmission Date: 20230113
  Serious: Yes (Hospitalization, Other)
  Sender: FDA-Public Use
  Company Number: FR-NOVARTISPH-NVSC2022FR228059

PATIENT
  Age: 62 Year
  Sex: Male
  Weight: 98 kg

DRUGS (9)
  1. TAFINLAR [Suspect]
     Active Substance: DABRAFENIB MESYLATE
     Indication: Lung adenocarcinoma
     Dosage: 100 MG, BID (MORNINGS AND EVENINGS)
     Route: 065
     Dates: start: 20200304
  2. TAFINLAR [Suspect]
     Active Substance: DABRAFENIB MESYLATE
     Indication: Metastases to pleura
     Dosage: 100 MG, ONCE/SINGLE (ONLY MORNING ONCE)
     Route: 065
     Dates: start: 20221005
  3. MEKINIST [Suspect]
     Active Substance: TRAMETINIB DIMETHYL SULFOXIDE
     Indication: Metastases to pleura
     Dosage: 1.5 MG, QD (DAILY IN THE MORNING)
     Route: 065
     Dates: start: 20200304
  4. MEKINIST [Suspect]
     Active Substance: TRAMETINIB DIMETHYL SULFOXIDE
     Indication: Lung adenocarcinoma
     Dosage: 1 MG, ONCE/SINGLE
     Route: 065
     Dates: start: 20221005
  5. URAPIDIL [Concomitant]
     Active Substance: URAPIDIL
     Indication: Hypertension
     Dosage: 60 MG (ONE TO TWO CAPSULES IF BLOOD PRESSURE HIGH)
     Route: 048
  6. AMIODARONE [Concomitant]
     Active Substance: AMIODARONE
     Indication: Product used for unknown indication
     Dosage: 200 MG, QD (ONE IN THE MORNING)
     Route: 048
  7. LOVENOX [Concomitant]
     Active Substance: ENOXAPARIN SODIUM
     Indication: Product used for unknown indication
     Dosage: 6000 IU, BID
     Route: 058
  8. BISOPROLOL [Concomitant]
     Active Substance: BISOPROLOL
     Indication: Product used for unknown indication
     Dosage: 5 MG, QD (ONE IN THE MORNING)
     Route: 048
  9. ATORVASTATIN [Concomitant]
     Active Substance: ATORVASTATIN
     Indication: Product used for unknown indication
     Dosage: 10 MG, QD (ONE IN THE EVENING)
     Route: 048

REACTIONS (4)
  - Peripheral artery aneurysm [Unknown]
  - Aortic dissection [Unknown]
  - Incorrect dose administered [Unknown]
  - Product supply issue [Unknown]

NARRATIVE: CASE EVENT DATE: 20221005
